FAERS Safety Report 10446572 (Version 2)
Quarter: 2014Q4

REPORT INFORMATION
  Report Type: Report from Study
  Country: US (occurrence: US)
  Receive Date: 20140911
  Receipt Date: 20141009
  Transmission Date: 20150528
  Serious: Yes (Other)
  Sender: FDA-Public Use
  Company Number: PHEH2014US017976

PATIENT
  Age: 31 Year
  Sex: Female

DRUGS (1)
  1. TRILEPTAL [Suspect]
     Active Substance: OXCARBAZEPINE
     Indication: PRODUCT USED FOR UNKNOWN INDICATION
     Dosage: 1800 MG, BID
     Route: 048

REACTIONS (3)
  - Pyrexia [Unknown]
  - Seizure [Unknown]
  - Influenza like illness [Unknown]

NARRATIVE: CASE EVENT DATE: 20101224
